FAERS Safety Report 5138669-9 (Version None)
Quarter: 2006Q4

REPORT INFORMATION
  Report Type: 
  Country: None (occurrence: None)
  Receive Date: 20061026
  Receipt Date: 20061026
  Transmission Date: 20070319
  Serious: Yes (Hospitalization)
  Sender: FDA-Public Use
  Company Number: None

PATIENT
  Sex: Female
  Weight: 77 kg

DRUGS (8)
  1. METHOTREXATE [Suspect]
     Dosage: 23 G
  2. LEUCOVORIN CALCIUM [Suspect]
     Dosage: 25 MG
  3. DEXAMETHASONE TAB [Concomitant]
  4. DILATIN [Concomitant]
  5. FAMOTIDINE [Concomitant]
  6. PHENOBARBITAL TAB [Concomitant]
  7. VALIUM [Concomitant]
  8. ZOFRAN [Concomitant]

REACTIONS (13)
  - ACUTE HEPATIC FAILURE [None]
  - BLOOD CREATININE INCREASED [None]
  - BRAIN HERNIATION [None]
  - COMA [None]
  - CYANOSIS [None]
  - GAMMA-GLUTAMYLTRANSFERASE INCREASED [None]
  - LETHARGY [None]
  - LOSS OF CONSCIOUSNESS [None]
  - MENTAL STATUS CHANGES [None]
  - NAUSEA [None]
  - PUPIL FIXED [None]
  - TROPONIN I INCREASED [None]
  - VOMITING [None]
